FAERS Safety Report 8266919-9 (Version None)
Quarter: 2012Q2

REPORT INFORMATION
  Report Type: 
  Country: None (occurrence: None)
  Receive Date: 20120404
  Receipt Date: 20120404
  Transmission Date: 20120825
  Serious: Yes (Other)
  Sender: FDA-Public Use
  Company Number: None

PATIENT
  Sex: Female

DRUGS (2)
  1. PEG-INTRON [Suspect]
     Dosage: 80MCG WEEKLY SUBQ
     Route: 058
     Dates: start: 20120216, end: 20120330
  2. RIBAVIRIN [Suspect]
     Dosage: 600MG DIVIDED DOSE PO
     Route: 048
     Dates: start: 20120226, end: 20120330

REACTIONS (1)
  - CHEST PAIN [None]
